FAERS Safety Report 23040019 (Version 1)
Quarter: 2023Q4

REPORT INFORMATION
  Report Type: Spontaneous
  Country: US (occurrence: US)
  Receive Date: 20231006
  Receipt Date: 20231006
  Transmission Date: 20240109
  Serious: No
  Sender: FDA-Public Use
  Company Number: US-MYLANLABS-2023M1103343

PATIENT
  Sex: Male
  Weight: 45.36 kg

DRUGS (2)
  1. DOXEPIN [Suspect]
     Active Substance: DOXEPIN
     Indication: Nightmare
     Dosage: 25 MILLIGRAM, QD AT BEDTIME
     Route: 048
  2. QUETIAPINE [Concomitant]
     Active Substance: QUETIAPINE
     Indication: Depression
     Dosage: 100 MILLIGRAM, QD AT BEDTIME
     Route: 048
     Dates: start: 20230914

REACTIONS (1)
  - Drug ineffective for unapproved indication [Unknown]
